FAERS Safety Report 15010587 (Version 1)
Quarter: 2018Q2

REPORT INFORMATION
  Report Type: Spontaneous
  Country: US (occurrence: US)
  Receive Date: 20180528
  Receipt Date: 20180528
  Transmission Date: 20180711
  Serious: Yes (Other)
  Sender: FDA-Public Use
  Company Number: None

PATIENT
  Age: 56 Year
  Sex: Female
  Weight: 65.25 kg

DRUGS (3)
  1. BYSTOLIC [Suspect]
     Active Substance: NEBIVOLOL HYDROCHLORIDE
     Indication: HYPERTENSION
     Dosage: ?          QUANTITY:1 TABLET(S);?
     Route: 048
     Dates: start: 20180505, end: 20180508
  2. PSYLLIUM [Concomitant]
     Active Substance: PLANTAGO SEED
  3. VALSARTAN. [Suspect]
     Active Substance: VALSARTAN
     Indication: HYPERTENSION
     Dosage: ?          QUANTITY:1 TABLET(S);?
     Route: 048

REACTIONS (3)
  - Abdominal pain upper [None]
  - Hyponatraemia [None]
  - Decreased appetite [None]

NARRATIVE: CASE EVENT DATE: 20180508
